FAERS Safety Report 12809602 (Version 1)
Quarter: 2016Q4

REPORT INFORMATION
  Report Type: Spontaneous
  Country: ES (occurrence: ES)
  Receive Date: 20161005
  Receipt Date: 20161005
  Transmission Date: 20170207
  Serious: Yes (Other)
  Sender: FDA-Public Use
  Company Number: ES-ROCHE-1838216

PATIENT
  Age: 41 Year
  Sex: Female

DRUGS (2)
  1. TOCILIZUMAB [Suspect]
     Active Substance: TOCILIZUMAB
     Indication: BASEDOW^S DISEASE
     Route: 065
     Dates: start: 2014
  2. TOCILIZUMAB [Suspect]
     Active Substance: TOCILIZUMAB
     Indication: DISORDER OF ORBIT

REACTIONS (1)
  - Multiple sclerosis [Recovered/Resolved]
